FAERS Safety Report 16426519 (Version 1)
Quarter: 2019Q2

REPORT INFORMATION
  Report Type: Report from Study
  Country: CN (occurrence: CN)
  Receive Date: 20190613
  Receipt Date: 20190613
  Transmission Date: 20190711
  Serious: Yes (Hospitalization)
  Sender: FDA-Public Use
  Company Number: CN-ASTRAZENECA-2019SE77807

PATIENT
  Age: 478 Month
  Sex: Female

DRUGS (5)
  1. PEMETREXED. [Concomitant]
     Active Substance: PEMETREXED
  2. CISPLATIN. [Concomitant]
     Active Substance: CISPLATIN
  3. CAPPER [Concomitant]
  4. IRESSA [Suspect]
     Active Substance: GEFITINIB
     Indication: NON-SMALL CELL LUNG CANCER
     Route: 048
     Dates: start: 201801, end: 201904
  5. TAGRISSO [Suspect]
     Active Substance: OSIMERTINIB
     Route: 048
     Dates: start: 201904

REACTIONS (3)
  - Drug resistance [Unknown]
  - Reflux gastritis [Not Recovered/Not Resolved]
  - Radiation pneumonitis [Not Recovered/Not Resolved]

NARRATIVE: CASE EVENT DATE: 201904
